FAERS Safety Report 22356319 (Version 2)
Quarter: 2023Q4

REPORT INFORMATION
  Report Type: Spontaneous
  Country: US (occurrence: US)
  Receive Date: 20230523
  Receipt Date: 20231207
  Transmission Date: 20240110
  Serious: Yes (Hospitalization, Other)
  Sender: FDA-Public Use
  Company Number: US-PFIZER INC-PV202200132797

PATIENT
  Age: 70 Year
  Sex: Female

DRUGS (1)
  1. XELJANZ XR [Suspect]
     Active Substance: TOFACITINIB CITRATE
     Dosage: 11 MG, 1X/DAY (DIRECTIONS TAKE 1 TABLET BY MOUTH DAILY 90 DAYS)
     Route: 048

REACTIONS (4)
  - Knee operation [Unknown]
  - Nerve block [Unknown]
  - Arthritis [Unknown]
  - Cardiac disorder [Unknown]
